FAERS Safety Report 15618569 (Version 1)
Quarter: 2018Q4

REPORT INFORMATION
  Report Type: Other
  Country: IN (occurrence: IN)
  Receive Date: 20181114
  Receipt Date: 20181114
  Transmission Date: 20190205
  Serious: Yes (Hospitalization)
  Sender: FDA-Public Use
  Company Number: IN-LEADING PHARMA, LLC-2058863

PATIENT
  Age: 3 Year
  Sex: Female
  Weight: 8.1 kg

DRUGS (1)
  1. FUROSEMIDE. [Suspect]
     Active Substance: FUROSEMIDE
     Indication: OEDEMA
     Route: 048

REACTIONS (2)
  - Pseudo-Bartter syndrome [Recovered/Resolved]
  - Unevaluable event [Recovered/Resolved]
